FAERS Safety Report 5031155-6 (Version None)
Quarter: 2006Q2

REPORT INFORMATION
  Report Type: 
  Country: None (occurrence: None)
  Receive Date: 20060615
  Receipt Date: 20060530
  Transmission Date: 20061013
  Serious: Yes (Life-Threatening, Other)
  Sender: FDA-Public Use
  Company Number: 14156

PATIENT
  Age: 54 Year
  Sex: Male

DRUGS (5)
  1. AMIODARONE HCL [Suspect]
     Indication: ATRIAL FLUTTER
     Dosage: 300 MG IV
     Route: 042
     Dates: start: 20060509, end: 20060509
  2. AMIODARONE HCL [Suspect]
     Indication: SUPRAVENTRICULAR TACHYCARDIA
     Dosage: 300 MG IV
     Route: 042
     Dates: start: 20060509, end: 20060509
  3. ATENOLOL [Suspect]
     Indication: ATRIAL FLUTTER
     Dosage: 50 MG PO
     Route: 048
     Dates: start: 20060508
  4. ATENOLOL [Suspect]
     Indication: SUPRAVENTRICULAR TACHYCARDIA
     Dosage: 50 MG PO
     Route: 048
     Dates: start: 20060508
  5. THYROXINE [Concomitant]

REACTIONS (4)
  - BLOOD PRESSURE IMMEASURABLE [None]
  - DRUG INEFFECTIVE [None]
  - HYPOTHYROIDISM [None]
  - TREATMENT NONCOMPLIANCE [None]
